FAERS Safety Report 16940915 (Version 1)
Quarter: 2019Q4

REPORT INFORMATION
  Report Type: Spontaneous
  Country: CN (occurrence: CN)
  Receive Date: 20191021
  Receipt Date: 20191021
  Transmission Date: 20200122
  Serious: Yes (Other)
  Sender: FDA-Public Use
  Company Number: CN-PFIZER INC-2019444230

PATIENT
  Age: 50 Year
  Sex: Male
  Weight: 70 kg

DRUGS (15)
  1. TEICOPLANIN [Concomitant]
     Active Substance: TEICOPLANIN
  2. GLUTATHIONE [Concomitant]
     Active Substance: GLUTATHIONE
     Indication: PROPHYLAXIS
     Dosage: 2.4 G, DAILY
     Route: 042
  3. METHYLPREDNISOLONE SODIUM SUCCINATE. [Concomitant]
     Active Substance: METHYLPREDNISOLONE SODIUM SUCCINATE
     Indication: THERAPEUTIC PROCEDURE
  4. POLYMYXIN B. [Concomitant]
     Active Substance: POLYMYXIN B
     Dosage: 50 MG, 2X/DAY
     Route: 041
  5. INSULIN [Concomitant]
     Active Substance: INSULIN NOS
     Indication: THERAPEUTIC PROCEDURE
  6. NADROPARIN CALCIUM [Concomitant]
     Active Substance: NADROPARIN CALCIUM
     Indication: ANTICOAGULANT THERAPY
  7. TIGECYCLINE. [Suspect]
     Active Substance: TIGECYCLINE
     Dosage: 100 MG, 2X/DAY
     Route: 041
  8. COMPOUND SULFAMETHOXAZOLE [Suspect]
     Active Substance: SULFAMETHOXAZOLE
     Dosage: 1.92 G, 3X/DAY
     Route: 048
  9. BICYCLOL [Concomitant]
     Active Substance: BICYCLOL
     Indication: PROPHYLAXIS
     Dosage: 25 MG, 3X/DAY
     Route: 048
  10. MEROPENEM. [Concomitant]
     Active Substance: MEROPENEM
     Dosage: 1 G, 2X/DAY
     Route: 042
  11. AZTREONAM. [Concomitant]
     Active Substance: AZTREONAM
  12. OMEPRAZOLE. [Concomitant]
     Active Substance: OMEPRAZOLE
     Indication: THERAPEUTIC PROCEDURE
  13. AMBROXOL [Concomitant]
     Active Substance: AMBROXOL
     Indication: THERAPEUTIC PROCEDURE
  14. VORICONAZOLE. [Suspect]
     Active Substance: VORICONAZOLE
     Indication: ASPERGILLUS INFECTION
     Dosage: 0.2 G, 2X/DAY
     Route: 041
  15. VANCOMYCIN [Concomitant]
     Active Substance: VANCOMYCIN

REACTIONS (1)
  - Drug-induced liver injury [Recovering/Resolving]
